FAERS Safety Report 4931128-5 (Version None)
Quarter: 2006Q1

REPORT INFORMATION
  Report Type: 
  Country: None (occurrence: None)
  Receive Date: 20060302
  Receipt Date: 20060220
  Transmission Date: 20060701
  Serious: Yes (Hospitalization)
  Sender: FDA-Public Use
  Company Number: US-MERCK-0602USA05175

PATIENT
  Age: 51 Year
  Sex: Male
  Weight: 131 kg

DRUGS (9)
  1. VIOXX [Suspect]
     Route: 048
  2. COREG [Concomitant]
     Route: 065
  3. GLUCOPHAGE [Concomitant]
     Route: 065
  4. ACCUPRIL [Concomitant]
     Route: 065
  5. LIPITOR [Concomitant]
     Route: 065
  6. CARDURA [Concomitant]
     Route: 065
  7. NORVASC [Concomitant]
     Route: 065
  8. ACIPHEX [Concomitant]
     Route: 065
  9. ECOTRIN [Concomitant]
     Route: 065

REACTIONS (32)
  - ARTERIOSCLEROSIS [None]
  - ATRIAL FIBRILLATION [None]
  - BASAL CELL CARCINOMA [None]
  - BILE DUCT STONE [None]
  - CHEST PAIN [None]
  - CHRONIC OBSTRUCTIVE PULMONARY DISEASE [None]
  - COLONIC POLYP [None]
  - CONJUNCTIVITIS VIRAL [None]
  - CORONARY ARTERY DISEASE [None]
  - CORONARY ARTERY OCCLUSION [None]
  - DIARRHOEA [None]
  - DIVERTICULUM [None]
  - DUODENITIS [None]
  - DYSPHAGIA [None]
  - GALLBLADDER DISORDER [None]
  - GASTRITIS [None]
  - GASTROOESOPHAGEAL REFLUX DISEASE [None]
  - HEADACHE [None]
  - HEPATIC CIRRHOSIS [None]
  - HERNIA [None]
  - HYPERLIPIDAEMIA [None]
  - HYPOACTIVE SEXUAL DESIRE DISORDER [None]
  - JAUNDICE CHOLESTATIC [None]
  - LEFT VENTRICULAR FAILURE [None]
  - LIVER DISORDER [None]
  - MYOCARDIAL ISCHAEMIA [None]
  - NORMOCHROMIC NORMOCYTIC ANAEMIA [None]
  - PLEURAL EFFUSION [None]
  - ROTATOR CUFF SYNDROME [None]
  - SLEEP APNOEA SYNDROME [None]
  - SPINAL DISORDER [None]
  - WHEEZING [None]
